FAERS Safety Report 5630484-2 (Version None)
Quarter: 2008Q1

REPORT INFORMATION
  Report Type: 
  Country: None (occurrence: None)
  Receive Date: 20080213
  Receipt Date: 20080204
  Transmission Date: 20080703
  Serious: Yes (Death)
  Sender: FDA-Public Use
  Company Number: 2008-00983

PATIENT
  Age: 68 Year
  Sex: Male

DRUGS (2)
  1. CHLORDIAZEPOXIDE/AMITRIPTYLINE HCL        (CHLORDIAZEPOXIDE, AMITRIPTY [Suspect]
  2. HYDROCODONE BITARTRATE/ACETAMINOPHEN  (ACETAMINOPHEN, HYDROCODONE BITA [Suspect]

REACTIONS (1)
  - CARDIO-RESPIRATORY ARREST [None]
